FAERS Safety Report 18565748 (Version 1)
Quarter: 2020Q4

REPORT INFORMATION
  Report Type: Spontaneous
  Country: US (occurrence: US)
  Receive Date: 20201201
  Receipt Date: 20201201
  Transmission Date: 20210114
  Serious: Yes (Other)
  Sender: FDA-Public Use
  Company Number: US-PURDUE-USA-2020-0177357

PATIENT
  Sex: Female

DRUGS (2)
  1. OXYCONTIN [Suspect]
     Active Substance: OXYCODONE HYDROCHLORIDE
     Indication: PAIN
     Dosage: 80 MG, UNK
     Route: 048
  2. DILAUDID [Suspect]
     Active Substance: HYDROMORPHONE HYDROCHLORIDE
     Indication: PAIN
     Dosage: 24 MG, UNK
     Route: 048

REACTIONS (6)
  - Overdose [Unknown]
  - Tooth loss [Unknown]
  - Gastric mucosal hypertrophy [Unknown]
  - Drug dependence [Unknown]
  - Unevaluable event [Unknown]
  - Gastric cancer [Unknown]
